FAERS Safety Report 6930862-5 (Version None)
Quarter: 2010Q3

REPORT INFORMATION
  Report Type: 
  Country: None (occurrence: None)
  Receive Date: 20100818
  Receipt Date: 20100809
  Transmission Date: 20110219
  Serious: Yes (Hospitalization, Other)
  Sender: FDA-Public Use
  Company Number: US-ALEXION-A201000766

PATIENT
  Sex: Female

DRUGS (2)
  1. SOLIRIS [Suspect]
     Indication: PAROXYSMAL NOCTURNAL HAEMOGLOBINURIA
     Dosage: 600 MG, QW
     Route: 042
     Dates: start: 20091012, end: 20091102
  2. SOLIRIS [Suspect]
     Dosage: 900 MG, Q2W
     Route: 042
     Dates: start: 20091109, end: 20100419

REACTIONS (6)
  - DEHYDRATION [None]
  - DYSPHAGIA [None]
  - PNEUMONIA ASPIRATION [None]
  - RENAL FAILURE [None]
  - STAPHYLOCOCCAL SEPSIS [None]
  - THROMBOSIS [None]
